FAERS Safety Report 15647145 (Version 1)
Quarter: 2018Q4

REPORT INFORMATION
  Report Type: Report from Study
  Country: MW (occurrence: MW)
  Receive Date: 20181122
  Receipt Date: 20181122
  Transmission Date: 20190205
  Serious: Yes (Hospitalization, Other)
  Sender: FDA-Public Use
  Company Number: MW-AUROBINDO-AUR-APL-2018-055640

PATIENT
  Age: 38 Year
  Sex: Male

DRUGS (3)
  1. FLUCYTOSINE. [Concomitant]
     Active Substance: FLUCYTOSINE
     Indication: MENINGITIS CRYPTOCOCCAL
     Dosage: UNK
     Route: 065
  2. FLUCONAZOLE. [Concomitant]
     Active Substance: FLUCONAZOLE
     Indication: MENINGITIS CRYPTOCOCCAL
     Dosage: UNK
     Route: 065
  3. EFAVIRENZ, LAMIVUDINE AND TENOFOVIR DISOPROXIL FUMARATE [Suspect]
     Active Substance: EFAVIRENZ\LAMIVUDINE\TENOFOVIR DISOPROXIL FUMARATE
     Indication: ANTIRETROVIRAL THERAPY
     Dosage: UNK
     Route: 065

REACTIONS (7)
  - Ischaemic stroke [Recovering/Resolving]
  - Immune reconstitution inflammatory syndrome [Recovering/Resolving]
  - Pyrexia [Recovering/Resolving]
  - Hemiparesis [Recovering/Resolving]
  - Central nervous system vasculitis [Recovering/Resolving]
  - Headache [Recovering/Resolving]
  - Asthenia [Recovered/Resolved]
